FAERS Safety Report 9043838 (Version 1)
Quarter: 2013Q1

REPORT INFORMATION
  Report Type: Report from Study
  Country: US (occurrence: US)
  Receive Date: 20130130
  Receipt Date: 20130130
  Transmission Date: 20140127
  Serious: No
  Sender: FDA-Public Use
  Company Number: US-ABBOTT-12P-163-0944772-00

PATIENT
  Sex: Male
  Weight: 111.23 kg

DRUGS (5)
  1. HUMIRA 40 MG/0.8 ML PEN [Suspect]
     Indication: RHEUMATOID ARTHRITIS
     Dates: start: 201204
  2. HUMIRA 40 MG/0.8 ML PEN [Suspect]
     Dates: start: 201206
  3. METHOTREXATE [Concomitant]
     Indication: RHEUMATOID ARTHRITIS
  4. VITAMIN D [Concomitant]
     Indication: SUPPLEMENTATION THERAPY
  5. PREDNISONE [Concomitant]
     Indication: RHEUMATOID ARTHRITIS

REACTIONS (3)
  - Toothache [Recovered/Resolved]
  - Tooth infection [Recovered/Resolved]
  - Endodontic procedure [Unknown]
